FAERS Safety Report 20887486 (Version 1)
Quarter: 2022Q2

REPORT INFORMATION
  Report Type: Spontaneous
  Country: IN (occurrence: IN)
  Receive Date: 20220528
  Receipt Date: 20220528
  Transmission Date: 20220720
  Serious: Yes (Life-Threatening, Hospitalization)
  Sender: FDA-Public Use
  Company Number: IN-STRIDES ARCOLAB LIMITED-2022SP006151

PATIENT
  Age: 34 Year
  Sex: Female

DRUGS (1)
  1. TACROLIMUS [Suspect]
     Active Substance: TACROLIMUS
     Indication: Liver transplant
     Dosage: 0.5 MILLIGRAM, BID
     Route: 065

REACTIONS (3)
  - Guillain-Barre syndrome [Recovered/Resolved]
  - Varicella zoster virus infection [Recovered/Resolved]
  - Infection reactivation [Recovered/Resolved]
